FAERS Safety Report 14845736 (Version 1)
Quarter: 2018Q2

REPORT INFORMATION
  Report Type: Spontaneous
  Country: US (occurrence: US)
  Receive Date: 20180504
  Receipt Date: 20180504
  Transmission Date: 20180711
  Serious: No
  Sender: FDA-Public Use
  Company Number: US-JNJFOC-20180428965

PATIENT
  Sex: Male

DRUGS (14)
  1. KENALOG [Concomitant]
     Active Substance: TRIAMCINOLONE ACETONIDE
     Dosage: 5 MG
     Route: 065
  2. ZINC. [Concomitant]
     Active Substance: ZINC
     Dosage: 5 MG
     Route: 065
  3. FLOMAX [Concomitant]
     Active Substance: TAMSULOSIN HYDROCHLORIDE
     Dosage: 5 MG
     Route: 065
  4. VITAMIN E [Concomitant]
     Active Substance: .ALPHA.-TOCOPHEROL
     Dosage: 5 MG
     Route: 065
  5. TYLENOL [Concomitant]
     Active Substance: ACETAMINOPHEN
     Route: 065
  6. COREG [Concomitant]
     Active Substance: CARVEDILOL
     Dosage: 5 MG
     Route: 065
  7. GLUCOSAMINE HCL [Concomitant]
     Active Substance: GLUCOSAMINE
     Dosage: 5 MG
     Route: 065
  8. ZYTIGA [Suspect]
     Active Substance: ABIRATERONE ACETATE
     Indication: PROSTATE CANCER
     Dosage: STRENGTH 500 MG
     Route: 048
  9. ELIQUIS [Concomitant]
     Active Substance: APIXABAN
     Route: 065
  10. VITAMIN C [Concomitant]
     Active Substance: ASCORBIC ACID
     Dosage: 5 MG
     Route: 065
  11. CYANOCOBALAMIN. [Concomitant]
     Active Substance: CYANOCOBALAMIN
     Dosage: 5 MG
     Route: 065
  12. LUPRON [Concomitant]
     Active Substance: LEUPROLIDE ACETATE
     Dosage: 5 MG
     Route: 065
  13. POTASSIUM [Concomitant]
     Active Substance: POTASSIUM
     Dosage: 5 MG
     Route: 065
  14. DELTASON [Concomitant]
     Active Substance: PREDNISONE
     Dosage: 5 MG
     Route: 065

REACTIONS (1)
  - Adverse event [Unknown]
